FAERS Safety Report 6687388-6 (Version None)
Quarter: 2010Q2

REPORT INFORMATION
  Report Type: 
  Country: None (occurrence: None)
  Receive Date: 20100415
  Receipt Date: 20100406
  Transmission Date: 20101027
  Serious: Yes (Other)
  Sender: FDA-Public Use
  Company Number: 1000010309

PATIENT
  Age: 24 Year
  Sex: Male
  Weight: 90 kg

DRUGS (21)
  1. ESCITALOPRAM [Suspect]
     Indication: AGORAPHOBIA
     Dosage: 5 MG (5 MG), ORAL, 10 MG (10 MG), ORAL
     Route: 048
     Dates: start: 20030101, end: 20060101
  2. ESCITALOPRAM [Suspect]
     Indication: PANIC ATTACK
     Dosage: 5 MG (5 MG), ORAL, 10 MG (10 MG), ORAL
     Route: 048
     Dates: start: 20030101, end: 20060101
  3. ESCITALOPRAM [Suspect]
     Indication: AGORAPHOBIA
     Dosage: 5 MG (5 MG), ORAL, 10 MG (10 MG), ORAL
     Route: 048
     Dates: start: 20060101, end: 20090701
  4. ESCITALOPRAM [Suspect]
     Indication: PANIC ATTACK
     Dosage: 5 MG (5 MG), ORAL, 10 MG (10 MG), ORAL
     Route: 048
     Dates: start: 20060101, end: 20090701
  5. ESCITALOPRAM [Suspect]
     Indication: AGORAPHOBIA
     Dosage: 2.5 MG (5 MG, 1 IN 2 D), ORAL
     Route: 048
     Dates: start: 20090701, end: 20090801
  6. ESCITALOPRAM [Suspect]
     Indication: PANIC ATTACK
     Dosage: 2.5 MG (5 MG, 1 IN 2 D), ORAL
     Route: 048
     Dates: start: 20090701, end: 20090801
  7. ESCITALOPRAM [Suspect]
     Indication: AGORAPHOBIA
     Dosage: 10 MG (10 MG), ORAL, 10 MG (10 MG), ORAL
     Route: 048
     Dates: start: 20090801, end: 20091001
  8. ESCITALOPRAM [Suspect]
     Indication: PANIC ATTACK
     Dosage: 10 MG (10 MG), ORAL, 10 MG (10 MG), ORAL
     Route: 048
     Dates: start: 20090801, end: 20091001
  9. ESCITALOPRAM [Suspect]
     Indication: AGORAPHOBIA
     Dosage: 10 MG (10 MG), ORAL, 10 MG (10 MG), ORAL
     Route: 048
     Dates: start: 20091201, end: 20100101
  10. ESCITALOPRAM [Suspect]
     Indication: PANIC ATTACK
     Dosage: 10 MG (10 MG), ORAL, 10 MG (10 MG), ORAL
     Route: 048
     Dates: start: 20091201, end: 20100101
  11. CIPROFLOXACIN [Suspect]
     Indication: URINARY TRACT INFECTION
     Dosage: 2 IN 1 D, ORAL
     Route: 048
     Dates: start: 20090601, end: 20090606
  12. FLAGYL [Suspect]
     Indication: URINARY TRACT INFECTION
  13. RIVOTRIL (TABLETS) [Suspect]
     Indication: PANIC DISORDER
     Dosage: 0.25 MG (0.25 MG, 1 IN 1 D), ORAL, 0.5 MG (0.5 MG, 1 IN 1 D), ORAL
     Route: 048
     Dates: start: 20030101, end: 20100101
  14. RIVOTRIL (TABLETS) [Suspect]
     Indication: PANIC DISORDER
     Dosage: 0.25 MG (0.25 MG, 1 IN 1 D), ORAL, 0.5 MG (0.5 MG, 1 IN 1 D), ORAL
     Route: 048
     Dates: start: 20100101
  15. SEROXAT [Suspect]
     Indication: PANIC DISORDER
     Dosage: 20 MG (20 MG, 1 IN 1 D), ORAL
     Route: 048
     Dates: start: 20091103, end: 20091107
  16. MILNACIPRAN [Suspect]
     Indication: PANIC DISORDER
     Dosage: 50 MG, ORAL
     Route: 048
     Dates: start: 20091001, end: 20091014
  17. ZOLOFT [Suspect]
     Indication: PANIC DISORDER
     Dosage: 25 MG (25 MG, 1 IN 1 D), ORAL
     Route: 048
     Dates: start: 20091117, end: 20091121
  18. AZITROX [Concomitant]
  19. CURAM [Concomitant]
  20. DOXYCYCLIN [Concomitant]
  21. CREATINE MONOHYDRATE [Concomitant]

REACTIONS (23)
  - AGGRESSION [None]
  - ANXIETY [None]
  - APATHY [None]
  - BLEPHAROSPASM [None]
  - BLOOD GLUCOSE DECREASED [None]
  - DEPRESSION [None]
  - DEREALISATION [None]
  - DRUG WITHDRAWAL SYNDROME [None]
  - FATIGUE [None]
  - FEELING ABNORMAL [None]
  - HYPERHIDROSIS [None]
  - HYPERREFLEXIA [None]
  - IRRITABILITY [None]
  - MANIA [None]
  - NAUSEA [None]
  - PANIC ATTACK [None]
  - PARAESTHESIA [None]
  - PARANOIA [None]
  - PYREXIA [None]
  - SOMNOLENCE [None]
  - SUICIDAL IDEATION [None]
  - TINNITUS [None]
  - URINARY TRACT INFECTION [None]
